FAERS Safety Report 6673723-1 (Version None)
Quarter: 2010Q2

REPORT INFORMATION
  Report Type: 
  Country: None (occurrence: None)
  Receive Date: 20100407
  Receipt Date: 20100326
  Transmission Date: 20101027
  Serious: Yes (Other)
  Sender: FDA-Public Use
  Company Number: A-US2010-34764

PATIENT
  Age: 70 Year
  Sex: Male

DRUGS (3)
  1. TRACLEER [Suspect]
     Indication: PULMONARY ARTERIAL HYPERTENSION
  2. CALCIUM CHANNEL BLOCKERS [Concomitant]
  3. COUMADIN [Concomitant]

REACTIONS (2)
  - DIASTOLIC DYSFUNCTION [None]
  - PULMONARY HYPERTENSION [None]
